FAERS Safety Report 20707410 (Version 8)
Quarter: 2023Q4

REPORT INFORMATION
  Report Type: Spontaneous
  Country: US (occurrence: US)
  Receive Date: 20220413
  Receipt Date: 20231219
  Transmission Date: 20240110
  Serious: No
  Sender: FDA-Public Use
  Company Number: US-BRISTOL-MYERS SQUIBB COMPANY-2022-016298

PATIENT
  Age: 68 Year
  Sex: Female

DRUGS (4)
  1. REVLIMID [Suspect]
     Active Substance: LENALIDOMIDE
     Indication: Plasma cell myeloma
     Dosage: 1 CAPSULE (25 MILLIGRAM) DAILY
     Route: 048
     Dates: start: 20220112
  2. REVLIMID [Suspect]
     Active Substance: LENALIDOMIDE
     Dosage: 1 CAPSULE (20 MILLIGRAM) DAILY ON DAYS 1-21 OF EACH 28-DAY CYCLE
     Route: 048
  3. REVLIMID [Suspect]
     Active Substance: LENALIDOMIDE
     Dosage: 1 CAPSULE (15 MILLIGRAM) DAILY ON DAYS 1-21 OF EACH 28-DAY CYCLE
     Route: 048
     Dates: start: 20221201
  4. REVLIMID [Suspect]
     Active Substance: LENALIDOMIDE
     Route: 048

REACTIONS (4)
  - Headache [Unknown]
  - Nausea [Unknown]
  - Rash pruritic [Not Recovered/Not Resolved]
  - Product dose omission issue [Recovered/Resolved]

NARRATIVE: CASE EVENT DATE: 20220101
